FAERS Safety Report 24132053 (Version 1)
Quarter: 2024Q3

REPORT INFORMATION
  Report Type: Spontaneous
  Country: JP (occurrence: JP)
  Receive Date: 20240724
  Receipt Date: 20240724
  Transmission Date: 20241017
  Serious: Yes (Other)
  Sender: MERCK
  Company Number: JP-ONO-2024JP012809

PATIENT
  Age: 79 Year
  Sex: Female
  Weight: 33 kg

DRUGS (20)
  1. SITAGLIPTIN [Suspect]
     Active Substance: SITAGLIPTIN
     Indication: Type 2 diabetes mellitus
     Dosage: 100 MG
     Route: 048
  2. DAPAGLIFLOZIN [Suspect]
     Active Substance: DAPAGLIFLOZIN
     Indication: Type 2 diabetes mellitus
     Dosage: 50 MG
     Route: 048
  3. ESAXERENONE [Suspect]
     Active Substance: ESAXERENONE
     Dosage: 5 MG
     Route: 065
     Dates: start: 20230620, end: 20230725
  4. ESAXERENONE [Suspect]
     Active Substance: ESAXERENONE
     Dosage: 2.5 MG
     Route: 065
  5. FUROSEMIDE [Concomitant]
     Active Substance: FUROSEMIDE
     Dosage: UNK
     Route: 065
  6. AMLODIPINE [Concomitant]
     Active Substance: AMLODIPINE BESYLATE
     Indication: Hypertension
     Dosage: 10 MG
     Route: 065
  7. CANDESARTAN CILEXETIL\HYDROCHLOROTHIAZIDE [Concomitant]
     Active Substance: CANDESARTAN CILEXETIL\HYDROCHLOROTHIAZIDE
     Indication: Hypertension
     Dosage: UNK
     Route: 048
  8. BISOPROLOL FUMARATE [Concomitant]
     Active Substance: BISOPROLOL FUMARATE
     Indication: Hypertension
     Dosage: 2.5 MG
     Route: 065
  9. BISOPROLOL FUMARATE [Concomitant]
     Active Substance: BISOPROLOL FUMARATE
     Dosage: 5 MG
     Route: 065
     Dates: start: 20230728
  10. ROSUVASTATIN [Concomitant]
     Active Substance: ROSUVASTATIN
     Indication: Hypercholesterolaemia
     Dosage: 10 MG
     Route: 065
  11. ELDECALCITOL [Concomitant]
     Active Substance: ELDECALCITOL
     Indication: Osteoporosis
     Dosage: 0.75 UG
     Route: 065
  12. URSO S [Concomitant]
     Indication: Autoimmune hepatitis
     Dosage: 900 MG
     Route: 065
  13. AMMONIUM GLYCYRRHIZATE [Concomitant]
     Active Substance: AMMONIUM GLYCYRRHIZATE
     Indication: Autoimmune hepatitis
     Dosage: 9 DF
     Route: 048
  14. PREDONINE [Concomitant]
     Active Substance: PREDNISOLONE
     Indication: Autoimmune hepatitis
     Dosage: 2.5 MG, QOD
     Route: 065
  15. AMARYL [Concomitant]
     Active Substance: GLIMEPIRIDE
     Dosage: 0.5 MG, EVERYDAY
     Route: 065
     Dates: start: 20230620, end: 20230925
  16. AMARYL [Concomitant]
     Active Substance: GLIMEPIRIDE
     Dosage: 1.5 MG, EVERYDAY
     Route: 065
     Dates: start: 20230926, end: 20231023
  17. AMARYL [Concomitant]
     Active Substance: GLIMEPIRIDE
     Dosage: 2.0 MG, EVERYDAY
     Route: 065
     Dates: start: 20231024, end: 20231127
  18. AMARYL [Concomitant]
     Active Substance: GLIMEPIRIDE
     Dosage: 3 MG
     Route: 065
     Dates: start: 20231128
  19. TRESIBA [Concomitant]
     Active Substance: INSULIN DEGLUDEC
     Dosage: 4 IU
     Route: 065
     Dates: start: 20240130
  20. TRESIBA [Concomitant]
     Active Substance: INSULIN DEGLUDEC
     Dosage: 6 IU
     Route: 065
     Dates: start: 20240207

REACTIONS (8)
  - Cataract [Unknown]
  - Renal impairment [Unknown]
  - Blood pressure decreased [Unknown]
  - Sarcopenia [Unknown]
  - Asthenia [Unknown]
  - Blood urea increased [Unknown]
  - Blood creatinine increased [Unknown]
  - Weight decreased [Recovered/Resolved]

NARRATIVE: CASE EVENT DATE: 20230516
